FAERS Safety Report 20171219 (Version 1)
Quarter: 2021Q4

REPORT INFORMATION
  Report Type: Spontaneous
  Country: US (occurrence: US)
  Receive Date: 20211210
  Receipt Date: 20211210
  Transmission Date: 20220303
  Serious: Yes (Other)
  Sender: FDA-Public Use
  Company Number: US-AMNEAL PHARMACEUTICALS-2021-AMRX-04941

PATIENT
  Sex: Female
  Weight: 74 kg

DRUGS (16)
  1. PREDNISONE [Suspect]
     Active Substance: PREDNISONE
     Indication: Pulmonary fibrosis
     Dosage: 30 MILLIGRAM, QD
     Route: 048
     Dates: start: 202106, end: 2021
  2. PREDNISONE [Suspect]
     Active Substance: PREDNISONE
     Dosage: 40 MILLIGRAM
     Route: 048
     Dates: start: 2021, end: 2021
  3. PREDNISONE [Suspect]
     Active Substance: PREDNISONE
     Dosage: 20 MILLIGRAM, QD
     Route: 048
     Dates: start: 2021, end: 2021
  4. PREDNISONE [Suspect]
     Active Substance: PREDNISONE
     Dosage: 10 MILLIGRAM, QD
     Route: 048
     Dates: start: 2021
  5. OCALIVA [Suspect]
     Active Substance: OBETICHOLIC ACID
     Indication: Primary biliary cholangitis
     Dosage: 5 MILLIGRAM, QD
     Route: 048
     Dates: start: 20200330
  6. URSO [Suspect]
     Active Substance: URSODIOL
     Indication: Primary biliary cholangitis
     Dosage: 500 MILLIGRAM, BID
     Route: 065
     Dates: end: 2021
  7. URSO [Suspect]
     Active Substance: URSODIOL
     Dosage: 500 MILLIGRAM, QD
     Route: 065
     Dates: start: 2021, end: 2021
  8. URSO [Suspect]
     Active Substance: URSODIOL
     Dosage: 300 MILLIGRAM, TID
     Route: 048
     Dates: start: 20210921
  9. ATIVAN [Suspect]
     Active Substance: LORAZEPAM
     Indication: Sleep disorder due to a general medical condition
     Dosage: 0.5 MILLIGRAM, BEDTIME
     Route: 065
     Dates: start: 202108, end: 2021
  10. ATIVAN [Suspect]
     Active Substance: LORAZEPAM
     Dosage: 1 MILLIGRAM, BEDTIME
     Route: 065
     Dates: start: 2021
  11. VITAMIN D3 [Concomitant]
     Active Substance: CHOLECALCIFEROL
     Indication: Product used for unknown indication
     Dosage: UNK
     Route: 065
  12. AZELASTINE [Concomitant]
     Active Substance: AZELASTINE
     Indication: Product used for unknown indication
     Dosage: UNK
     Route: 065
  13. SYNTHROID [Concomitant]
     Active Substance: LEVOTHYROXINE SODIUM
     Indication: Product used for unknown indication
     Dosage: UNK
     Route: 065
  14. TRAZODONE [Concomitant]
     Active Substance: TRAZODONE HYDROCHLORIDE
     Indication: Product used for unknown indication
     Dosage: UNK
     Route: 065
  15. VITAMIN B12 [HYDROXOCOBALAMIN ACETATE] [Concomitant]
     Indication: Product used for unknown indication
     Dosage: UNK
     Route: 065
  16. METAMUCIL [Concomitant]
     Active Substance: PLANTAGO SEED
     Indication: Product used for unknown indication
     Dosage: UNK
     Route: 065

REACTIONS (13)
  - Drug-induced liver injury [Unknown]
  - Hepatic cirrhosis [Unknown]
  - Hepatic cyst [Unknown]
  - Renal cyst [Unknown]
  - Splenomegaly [Unknown]
  - Glomerular filtration rate decreased [Unknown]
  - Oedema [Unknown]
  - Dyspnoea exertional [Unknown]
  - Diarrhoea [Unknown]
  - Pruritus [Recovering/Resolving]
  - Fatigue [Unknown]
  - Nausea [Unknown]
  - Insomnia [Unknown]

NARRATIVE: CASE EVENT DATE: 20210101
